FAERS Safety Report 4339350-6 (Version None)
Quarter: 2004Q2

REPORT INFORMATION
  Report Type: 
  Country: None (occurrence: None)
  Receive Date: 20040414
  Receipt Date: 20040414
  Transmission Date: 20050107
  Serious: Yes (Hospitalization)
  Sender: FDA-Public Use
  Company Number: None

PATIENT
  Age: 67 Year
  Sex: Male
  Weight: 181.43 kg

DRUGS (2)
  1. INDOCIN [Suspect]
     Indication: PAIN
     Dosage: 50 MG BID ORAL
     Route: 048
     Dates: start: 20040225, end: 20040226
  2. ALTACE [Concomitant]

REACTIONS (1)
  - RENAL FAILURE ACUTE [None]
